FAERS Safety Report 4457863-3 (Version None)
Quarter: 2004Q3

REPORT INFORMATION
  Report Type: 
  Country: None (occurrence: None)
  Receive Date: 20040924
  Receipt Date: 20040916
  Transmission Date: 20050211
  Serious: Yes (Other)
  Sender: FDA-Public Use
  Company Number: US-JNJFOC-20040902915

PATIENT
  Sex: Female
  Weight: 72.12 kg

DRUGS (2)
  1. REMICADE [Suspect]
     Indication: RHEUMATOID ARTHRITIS
     Dosage: 22 INFUSIONS.
     Route: 042
  2. METHOTREXATE [Concomitant]
     Dates: start: 19830101

REACTIONS (1)
  - LYMPHOMA [None]
